FAERS Safety Report 8564127-5 (Version None)
Quarter: 2012Q3

REPORT INFORMATION
  Report Type: 
  Country: None (occurrence: None)
  Receive Date: 20120803
  Receipt Date: 20120730
  Transmission Date: 20120928
  Serious: Yes (Hospitalization)
  Sender: FDA-Public Use
  Company Number: US-GE HEALTHCARE MEDICAL DIAGNOSTICS-OPTN-PR-1207S-0015

PATIENT
  Sex: Female

DRUGS (2)
  1. OPTISON [Suspect]
     Indication: SYNCOPE
     Route: 042
     Dates: start: 20120730, end: 20120730
  2. OPTISON [Suspect]
     Indication: DIAGNOSTIC PROCEDURE

REACTIONS (7)
  - SWELLING FACE [None]
  - VISION BLURRED [None]
  - DEPRESSED LEVEL OF CONSCIOUSNESS [None]
  - SWOLLEN TONGUE [None]
  - TREMOR [None]
  - DYSKINESIA [None]
  - LACK OF SPONTANEOUS SPEECH [None]
